FAERS Safety Report 8080168 (Version 2)
Quarter: 2013Q1

REPORT INFORMATION
  Report Type: Spontaneous
  Country: US (occurrence: US)
  Receive Date: 20110808
  Receipt Date: 20130225
  Transmission Date: 20140127
  Serious: Yes (Other)
  Sender: FDA-Public Use
  Company Number: US-GLAXOSMITHKLINE-A0934503A

PATIENT
  Sex: Female

DRUGS (1)
  1. AVANDIA [Suspect]
     Indication: DIABETES MELLITUS
     Dosage: 4MG PER DAY
     Route: 048
     Dates: start: 200504, end: 200606

REACTIONS (5)
  - Chest pain [Not Recovered/Not Resolved]
  - Cardiac murmur [Unknown]
  - Heart rate increased [Unknown]
  - Ammonia [Unknown]
  - Cardiac failure congestive [Unknown]
